FAERS Safety Report 17078046 (Version 1)
Quarter: 2019Q4

REPORT INFORMATION
  Report Type: Spontaneous
  Country: US (occurrence: US)
  Receive Date: 20191126
  Receipt Date: 20191126
  Transmission Date: 20200122
  Serious: Yes (Other)
  Sender: FDA-Public Use
  Company Number: US-RISING PHARMACEUTICALS, INC.-2019RIS00592

PATIENT
  Age: 75 Year
  Sex: Male

DRUGS (2)
  1. TRIAMCINOLONE ACETONIDE. [Suspect]
     Active Substance: TRIAMCINOLONE ACETONIDE
     Indication: TRIGGER FINGER
     Route: 065
  2. LIDOCAINE. [Concomitant]
     Active Substance: LIDOCAINE
     Indication: TRIGGER FINGER
     Route: 065

REACTIONS (1)
  - Anaphylactic reaction [Recovered/Resolved]
